FAERS Safety Report 24852825 (Version 1)
Quarter: 2025Q1

REPORT INFORMATION
  Report Type: Report from Study
  Country: CA (occurrence: CA)
  Receive Date: 20250116
  Receipt Date: 20250116
  Transmission Date: 20250409
  Serious: Yes (Hospitalization, Other)
  Sender: ABBVIE
  Company Number: CA-ABBVIE-6080343

PATIENT
  Age: 59 Year
  Sex: Male

DRUGS (4)
  1. RINVOQ [Suspect]
     Active Substance: UPADACITINIB
     Indication: Crohn^s disease
     Route: 048
     Dates: start: 20241203, end: 20250104
  2. VALACYCLOVIR [Concomitant]
     Active Substance: VALACYCLOVIR HYDROCHLORIDE
     Indication: Product used for unknown indication
     Dosage: FOR 7 DAYS
     Route: 048
     Dates: start: 20250105
  3. ONDANSETRON [Concomitant]
     Active Substance: ONDANSETRON
     Indication: Nausea
     Dosage: AS NEEDED
     Route: 048
  4. mouthwash [Concomitant]
     Indication: Pain
     Dosage: AS NEEDED

REACTIONS (19)
  - Respiratory tract infection [Recovering/Resolving]
  - Herpangina [Unknown]
  - Gingival ulceration [Unknown]
  - Stomatitis [Recovering/Resolving]
  - Influenza like illness [Recovering/Resolving]
  - Immunosuppression [Unknown]
  - Dehydration [Unknown]
  - Acute kidney injury [Unknown]
  - Glossodynia [Recovering/Resolving]
  - Abdominal pain [Unknown]
  - Diarrhoea [Unknown]
  - Haematochezia [Unknown]
  - Nausea [Unknown]
  - Vomiting [Unknown]
  - Respiratory syncytial virus infection [Unknown]
  - Herpes simplex [Unknown]
  - Malaise [Recovering/Resolving]
  - Nasopharyngitis [Not Recovered/Not Resolved]
  - Pharyngeal ulceration [Unknown]

NARRATIVE: CASE EVENT DATE: 20250104
